FAERS Safety Report 6708652-8 (Version None)
Quarter: 2010Q2

REPORT INFORMATION
  Report Type: 
  Country: None (occurrence: None)
  Receive Date: 20100503
  Receipt Date: 20100421
  Transmission Date: 20101027
  Serious: Yes (Other)
  Sender: FDA-Public Use
  Company Number: US-ROCHE-700574

PATIENT
  Sex: Female

DRUGS (3)
  1. XELODA [Suspect]
     Dosage: 3 TABLETS IN THE MORNING AND 2 TABLETS IN THE EVENING
     Route: 048
     Dates: start: 20091212
  2. XELODA [Suspect]
     Dosage: DOSE INCREASED
     Route: 048
     Dates: end: 20100412
  3. VECTIBIX [Suspect]
     Route: 065
     Dates: start: 20100419

REACTIONS (3)
  - ABDOMINAL PAIN UPPER [None]
  - DYSGEUSIA [None]
  - MALIGNANT NEOPLASM PROGRESSION [None]
